FAERS Safety Report 13855625 (Version 1)
Quarter: 2017Q3

REPORT INFORMATION
  Report Type: Spontaneous
  Country: US (occurrence: US)
  Receive Date: 20170810
  Receipt Date: 20170810
  Transmission Date: 20171127
  Serious: No
  Sender: FDA-Public Use
  Company Number: US-VIFOR (INTERNATIONAL) INC.-VIT-2017-05502

PATIENT
  Age: 45 Year
  Sex: Male

DRUGS (8)
  1. NEXIUM [Concomitant]
     Active Substance: ESOMEPRAZOLE MAGNESIUM
  2. VELTASSA [Suspect]
     Active Substance: PATIROMER
     Indication: PRODUCT USED FOR UNKNOWN INDICATION
     Route: 048
     Dates: start: 20160728
  3. FAMOTIDINE. [Concomitant]
     Active Substance: FAMOTIDINE
  4. LEVEMIR [Concomitant]
     Active Substance: INSULIN DETEMIR
  5. ECOTRIN [Concomitant]
     Active Substance: ASPIRIN
  6. HYDROCORTISONE. [Concomitant]
     Active Substance: HYDROCORTISONE
  7. RENAGEL [Concomitant]
     Active Substance: SEVELAMER HYDROCHLORIDE
  8. NITROSTAT [Concomitant]
     Active Substance: NITROGLYCERIN

REACTIONS (1)
  - Drug dose omission [Unknown]

NARRATIVE: CASE EVENT DATE: 20170515
